FAERS Safety Report 5921399-0 (Version None)
Quarter: 2008Q4

REPORT INFORMATION
  Report Type: 
  Country: None (occurrence: None)
  Receive Date: 20081014
  Receipt Date: 20081006
  Transmission Date: 20090506
  Serious: Yes (Hospitalization)
  Sender: FDA-Public Use
  Company Number: 2008AL009977

PATIENT
  Age: 61 Year
  Sex: Female
  Weight: 54.4316 kg

DRUGS (4)
  1. DIGOXIN [Suspect]
     Indication: CARDIAC DISORDER
     Dosage: 0.25MG, PO
     Route: 048
  2. COREG [Concomitant]
  3. LISINOPRIL [Concomitant]
  4. SPIRONOLACTONE [Concomitant]

REACTIONS (14)
  - ASTHENIA [None]
  - CARDIAC FAILURE CONGESTIVE [None]
  - CARDIOMYOPATHY [None]
  - HYPERTENSION [None]
  - INCORRECT DOSE ADMINISTERED [None]
  - MALAISE [None]
  - MUSCULAR WEAKNESS [None]
  - NAUSEA [None]
  - PLEURAL EFFUSION [None]
  - PRODUCT QUALITY ISSUE [None]
  - SENSATION OF PRESSURE [None]
  - THERAPEUTIC AGENT TOXICITY [None]
  - VIRAL INFECTION [None]
  - VISION BLURRED [None]
